FAERS Safety Report 15128518 (Version 1)
Quarter: 2018Q3

REPORT INFORMATION
  Report Type: Spontaneous
  Country: IT (occurrence: IT)
  Receive Date: 20180711
  Receipt Date: 20180711
  Transmission Date: 20181010
  Serious: Yes (Other)
  Sender: FDA-Public Use
  Company Number: IT-AMGEN-ITASP2018092803

PATIENT
  Age: 51 Year
  Sex: Female
  Weight: 78 kg

DRUGS (17)
  1. ENANTONE LP [Concomitant]
     Active Substance: LEUPROLIDE ACETATE
  2. EPIRUBICIN HYDROCHLORIDE. [Concomitant]
     Active Substance: EPIRUBICIN HYDROCHLORIDE
  3. SOLDESAM [Concomitant]
     Active Substance: DEXAMETHASONE
  4. COLECALCIFEROL [Concomitant]
     Active Substance: CHOLECALCIFEROL
  5. CYCLOPHOSPHAMIDE. [Concomitant]
     Active Substance: CYCLOPHOSPHAMIDE
  6. ZOFRAN [Concomitant]
     Active Substance: ONDANSETRON HYDROCHLORIDE
  7. TRIMETON [Concomitant]
     Active Substance: CHLORPHENIRAMINE MALEATE
  8. RANITIDINE. [Concomitant]
     Active Substance: RANITIDINE
  9. PANTOPRAZOLE [Concomitant]
     Active Substance: PANTOPRAZOLE
  10. KADCYLA [Concomitant]
     Active Substance: ADO-TRASTUZUMAB EMTANSINE
  11. LETROZOLE. [Concomitant]
     Active Substance: LETROZOLE
  12. TRIPTORELIN [Concomitant]
     Active Substance: TRIPTORELIN
  13. ACIDO ZOLEDRONICO SANDOZ [Concomitant]
  14. FLUOROURACIL. [Concomitant]
     Active Substance: FLUOROURACIL
  15. XGEVA [Suspect]
     Active Substance: DENOSUMAB
     Indication: METASTASES TO BONE
     Dosage: 120 MG, CYCLICAL
     Route: 042
     Dates: start: 20131104, end: 20171229
  16. NOLVADEX [Concomitant]
     Active Substance: TAMOXIFEN CITRATE
  17. TWICE [Concomitant]

REACTIONS (1)
  - Osteonecrosis of jaw [Unknown]

NARRATIVE: CASE EVENT DATE: 20170213
